FAERS Safety Report 5677600-4 (Version None)
Quarter: 2008Q1

REPORT INFORMATION
  Report Type: 
  Country: None (occurrence: None)
  Receive Date: 20080324
  Receipt Date: 20080312
  Transmission Date: 20080703
  Serious: Yes (Death)
  Sender: FDA-Public Use
  Company Number: FR-GENENTECH-257902

PATIENT
  Age: 80 Year
  Sex: Female

DRUGS (2)
  1. MABTHERA [Suspect]
     Indication: MANTLE CELL LYMPHOMA
     Route: 042
  2. PREMEDICATION DRUGS [Concomitant]
     Indication: PREMEDICATION

REACTIONS (3)
  - DYSPNOEA [None]
  - LARYNGEAL OEDEMA [None]
  - NASAL OEDEMA [None]
